FAERS Safety Report 18039385 (Version 2)
Quarter: 2020Q3

REPORT INFORMATION
  Report Type: Spontaneous
  Country: GB (occurrence: GB)
  Receive Date: 20200718
  Receipt Date: 20200804
  Transmission Date: 20201103
  Serious: Yes (Hospitalization, Other)
  Sender: FDA-Public Use
  Company Number: GB-AUROBINDO-AUR-APL-2020-035243

PATIENT
  Sex: Male

DRUGS (10)
  1. RANITIDINE. [Suspect]
     Active Substance: RANITIDINE
     Indication: PROPHYLAXIS
     Dosage: UNK
     Route: 064
  2. FENTANYL. [Suspect]
     Active Substance: FENTANYL
     Dosage: 100 MICROGRAM
     Route: 064
  3. NITROUS OXIDE. [Suspect]
     Active Substance: NITROUS OXIDE
     Indication: ANAESTHESIA
     Dosage: UNK (50/50 MIXTURE OF OXYGEN (O2))
     Route: 064
  4. PROPOFOL. [Suspect]
     Active Substance: PROPOFOL
     Indication: ANAESTHESIA
     Dosage: 100 MILLIGRAM
     Route: 064
  5. ROCURONIUM [Suspect]
     Active Substance: ROCURONIUM BROMIDE
     Indication: ANAESTHESIA
     Dosage: 80 MILLIGRAM
     Route: 064
  6. FENTANYL. [Suspect]
     Active Substance: FENTANYL
     Indication: ANAESTHESIA
     Dosage: 100 MILLIGRAM
     Route: 064
  7. METOCLOPRAMIDE. [Suspect]
     Active Substance: METOCLOPRAMIDE
     Indication: PROPHYLAXIS
     Dosage: UNK
     Route: 064
  8. SEVOFLURANE. [Suspect]
     Active Substance: SEVOFLURANE
     Indication: ANAESTHESIA
     Dosage: 2 PERCENT (2 %, IN 50/50 O2/N2O)
     Route: 064
  9. SEVOFLURANE. [Suspect]
     Active Substance: SEVOFLURANE
     Dosage: 8 PERCENT
     Route: 064
  10. NITROUS OXIDE;OXYGEN [Suspect]
     Active Substance: NITROUS OXIDE\OXYGEN
     Indication: ANAESTHESIA
     Dosage: 50/50
     Route: 064

REACTIONS (2)
  - Apgar score abnormal [Unknown]
  - Foetal exposure during pregnancy [Unknown]
